FAERS Safety Report 16723999 (Version 1)
Quarter: 2019Q3

REPORT INFORMATION
  Report Type: Spontaneous
  Country: US (occurrence: US)
  Receive Date: 20190703
  Receipt Date: 20190703
  Transmission Date: 20191005
  Serious: Yes (Hospitalization)
  Sender: FDA-Public Use
  Company Number: None

PATIENT
  Age: 52 Year
  Sex: Female
  Weight: 54.6 kg

DRUGS (1)
  1. CISPLATIN. [Suspect]
     Active Substance: CISPLATIN
     Dates: end: 20190610

REACTIONS (13)
  - Shock haemorrhagic [None]
  - Lung consolidation [None]
  - Vaginal haemorrhage [None]
  - Hypotension [None]
  - Haematochezia [None]
  - Flatulence [None]
  - Lethargy [None]
  - Syncope [None]
  - Unresponsive to stimuli [None]
  - Gastric ulcer [None]
  - Duodenal ulcer [None]
  - Tachycardia [None]
  - Acute respiratory failure [None]

NARRATIVE: CASE EVENT DATE: 20190613
